FAERS Safety Report 13087749 (Version 1)
Quarter: 2017Q1

REPORT INFORMATION
  Report Type: Spontaneous
  Country: US (occurrence: US)
  Receive Date: 20170104
  Receipt Date: 20170104
  Transmission Date: 20170428
  Serious: No
  Sender: FDA-Public Use
  Company Number: None

PATIENT
  Age: 36 Year
  Sex: Female

DRUGS (3)
  1. COPAXONE [Suspect]
     Active Substance: GLATIRAMER ACETATE
     Indication: MULTIPLE SCLEROSIS
  2. COPAXONE [Suspect]
     Active Substance: GLATIRAMER ACETATE
     Indication: MIGRAINE WITHOUT AURA
  3. COPAXONE [Suspect]
     Active Substance: GLATIRAMER ACETATE
     Indication: MIGRAINE

REACTIONS (2)
  - Sinusitis [None]
  - Paraesthesia [None]

NARRATIVE: CASE EVENT DATE: 20170103
